FAERS Safety Report 4341012-6 (Version None)
Quarter: 2004Q2

REPORT INFORMATION
  Report Type: 
  Country: None (occurrence: None)
  Receive Date: 20040413
  Receipt Date: 20040401
  Transmission Date: 20050107
  Serious: Yes (Other)
  Sender: FDA-Public Use
  Company Number: 2004022441

PATIENT
  Age: 70 Year
  Sex: Male

DRUGS (2)
  1. GLUCOTROL [Suspect]
     Indication: DIABETES MELLITUS INSULIN-DEPENDENT
     Dosage: 10 MG (DAILY), ORAL
     Route: 048
     Dates: start: 20040101, end: 20040101
  2. INSULIN [Concomitant]

REACTIONS (7)
  - ABDOMINAL PAIN [None]
  - ANAPHYLACTIC REACTION [None]
  - ARRHYTHMIA [None]
  - BLOOD PRESSURE INCREASED [None]
  - NAUSEA [None]
  - PYREXIA [None]
  - VOMITING [None]
